FAERS Safety Report 17654209 (Version 1)
Quarter: 2020Q2

REPORT INFORMATION
  Report Type: Spontaneous
  Country: US (occurrence: US)
  Receive Date: 20200410
  Receipt Date: 20200410
  Transmission Date: 20200713
  Serious: Yes (Hospitalization)
  Sender: FDA-Public Use
  Company Number: US-PFIZER INC-2020142115

PATIENT
  Age: 61 Year
  Sex: Male
  Weight: 159.6 kg

DRUGS (23)
  1. KORLYM [Suspect]
     Active Substance: MIFEPRISTONE
     Indication: CUSHING^S SYNDROME
     Dosage: 300 MG, 1X/DAY
     Route: 048
     Dates: start: 20191128
  2. COQ10 [UBIDECARENONE] [Concomitant]
     Active Substance: UBIDECARENONE
     Dosage: UNK
  3. HYDRALAZINE [Concomitant]
     Active Substance: HYDRALAZINE HYDROCHLORIDE
     Dosage: UNK
  4. FUROSEMIDE. [Concomitant]
     Active Substance: FUROSEMIDE
     Dosage: 40 MG, DAILY
  5. ASPIRIN (E.C.) [Concomitant]
     Active Substance: ASPIRIN
     Dosage: UNK
  6. ATORVASTATIN [Concomitant]
     Active Substance: ATORVASTATIN
     Dosage: UNK
  7. HUMALOG [Concomitant]
     Active Substance: INSULIN LISPRO
     Dosage: UNK
  8. OXYBUTYNIN. [Concomitant]
     Active Substance: OXYBUTYNIN CHLORIDE
     Dosage: UNK
  9. SPIRONOLACTONE. [Concomitant]
     Active Substance: SPIRONOLACTONE
     Dosage: UNK
  10. VITAMIN D EFFEKTIV [Concomitant]
     Active Substance: VITAMIN D NOS
     Dosage: UNK
  11. PLAVIX [Concomitant]
     Active Substance: CLOPIDOGREL BISULFATE
     Dosage: UNK
  12. LEVEMIR [Concomitant]
     Active Substance: INSULIN DETEMIR
     Dosage: UNK
  13. CLONIDINE. [Concomitant]
     Active Substance: CLONIDINE
     Dosage: UNK
  14. MAGNESIUM [Concomitant]
     Active Substance: MAGNESIUM
     Dosage: UNK
  15. MYRBETRIQ [Concomitant]
     Active Substance: MIRABEGRON
     Dosage: UNK
  16. BUMETANIDE. [Suspect]
     Active Substance: BUMETANIDE
     Dosage: UNK
  17. CARVEDILOL. [Concomitant]
     Active Substance: CARVEDILOL
     Dosage: UNK
  18. TAMSULOSIN [Concomitant]
     Active Substance: TAMSULOSIN
     Dosage: UNK
  19. XARELTO [Concomitant]
     Active Substance: RIVAROXABAN
     Dosage: UNK
  20. CICLODAN [CICLOPIROX] [Concomitant]
     Dosage: UNK
  21. LOSARTAN. [Concomitant]
     Active Substance: LOSARTAN
     Dosage: UNK
  22. TRADJENTA [Concomitant]
     Active Substance: LINAGLIPTIN
     Dosage: UNK
  23. TYLENOL ARTHRITIS PAIN [Concomitant]
     Active Substance: ACETAMINOPHEN
     Dosage: UNK

REACTIONS (18)
  - Fatigue [Recovering/Resolving]
  - Sneezing [Not Recovered/Not Resolved]
  - Faeces hard [Unknown]
  - Blood creatinine increased [Unknown]
  - Nasopharyngitis [Not Recovered/Not Resolved]
  - Constipation [Not Recovered/Not Resolved]
  - Joint swelling [Not Recovered/Not Resolved]
  - Peripheral swelling [Not Recovered/Not Resolved]
  - Asthenia [Recovering/Resolving]
  - Blood glucose abnormal [Recovering/Resolving]
  - Product dose omission [Not Recovered/Not Resolved]
  - Malaise [Unknown]
  - Dyspnoea [Recovering/Resolving]
  - Mucous stools [Unknown]
  - Influenza [Recovering/Resolving]
  - Decreased appetite [Unknown]
  - Sleep disorder [Unknown]
  - Blood cholesterol decreased [Unknown]

NARRATIVE: CASE EVENT DATE: 20190113
